FAERS Safety Report 4865145-0 (Version None)
Quarter: 2005Q4

REPORT INFORMATION
  Report Type: 
  Country: None (occurrence: None)
  Receive Date: 20051223
  Receipt Date: 20051115
  Transmission Date: 20060501
  Serious: Yes (Death)
  Sender: FDA-Public Use
  Company Number: US-BRISTOL-MYERS SQUIBB COMPANY-13181508

PATIENT
  Age: 73 Year
  Sex: Male

DRUGS (3)
  1. MEGACE [Suspect]
  2. RADIATION THERAPY [Concomitant]
     Indication: LUNG NEOPLASM MALIGNANT
  3. CHEMOTHERAPY [Concomitant]
     Indication: LUNG NEOPLASM MALIGNANT

REACTIONS (1)
  - INTESTINAL ISCHAEMIA [None]
